FAERS Safety Report 7653400-0 (Version None)
Quarter: 2011Q3

REPORT INFORMATION
  Report Type: 
  Country: None (occurrence: None)
  Receive Date: 20110803
  Receipt Date: 20110801
  Transmission Date: 20111222
  Serious: No
  Sender: FDA-Public Use
  Company Number: US-PFIZER INC-2011175124

PATIENT
  Sex: Female
  Weight: 131.52 kg

DRUGS (2)
  1. BENADRYL [Concomitant]
     Indication: HYPERSENSITIVITY
     Dosage: UNK
  2. ADVIL LIQUI-GELS [Suspect]
     Indication: NEURALGIA
     Dosage: 600 MG, 1X/DAY
     Route: 048
     Dates: start: 20110729, end: 20110731

REACTIONS (1)
  - DRUG INEFFECTIVE [None]
